FAERS Safety Report 17679883 (Version 1)
Quarter: 2020Q2

REPORT INFORMATION
  Report Type: Spontaneous
  Country: US (occurrence: US)
  Receive Date: 20200417
  Receipt Date: 20200417
  Transmission Date: 20200714
  Serious: Yes (Other)
  Sender: FDA-Public Use
  Company Number: None

PATIENT
  Age: 70 Year
  Sex: Female
  Weight: 60.75 kg

DRUGS (8)
  1. METOPROLOL. [Concomitant]
     Active Substance: METOPROLOL
  2. FLAXSEED [Concomitant]
     Active Substance: FLAX SEED
  3. SLEEP AID [Concomitant]
  4. SIMVISTATIN [Concomitant]
     Active Substance: SIMVASTATIN
  5. BEOVU [Suspect]
     Active Substance: BROLUCIZUMAB-DBLL
     Indication: MACULAR DEGENERATION
     Dosage: ?          OTHER FREQUENCY:ONE TIME EYE INJEC;?
     Route: 047
     Dates: start: 20200219, end: 20200219
  6. FISH OIL [Concomitant]
     Active Substance: FISH OIL
  7. LISINOPRIL. [Concomitant]
     Active Substance: LISINOPRIL
  8. COENZYME Q10 [Concomitant]
     Active Substance: UBIDECARENONE

REACTIONS (7)
  - Drug hypersensitivity [None]
  - Visual impairment [None]
  - Vitreous floaters [None]
  - Vein disorder [None]
  - Vasculitis [None]
  - Skin reaction [None]
  - Erythema [None]

NARRATIVE: CASE EVENT DATE: 20200219
